FAERS Safety Report 18980404 (Version 1)
Quarter: 2021Q1

REPORT INFORMATION
  Report Type: Spontaneous
  Country: US (occurrence: US)
  Receive Date: 20210306
  Receipt Date: 20210306
  Transmission Date: 20210420
  Serious: Yes (Life-Threatening, Hospitalization)
  Sender: FDA-Public Use
  Company Number: None

PATIENT
  Age: 53 Year
  Sex: Female
  Weight: 119 kg

DRUGS (12)
  1. TIZANIDINE 4MG [Concomitant]
     Active Substance: TIZANIDINE
  2. HUMALOG 75/25 [Concomitant]
  3. ROSUVASTATIN 10MG [Concomitant]
     Active Substance: ROSUVASTATIN
  4. BYDUREON [Suspect]
     Active Substance: EXENATIDE
     Indication: TYPE 2 DIABETES MELLITUS
     Dosage: ?          OTHER FREQUENCY:WEEKLY;?
     Route: 058
     Dates: start: 20210203, end: 20210211
  5. OXYCODONE?ACETAMINOPHEN 10/325MG [Concomitant]
  6. AZELASTINE 137MCG/INH [Concomitant]
     Active Substance: AZELASTINE
  7. DICLOFENAC 1% [Concomitant]
  8. DOXEPIN 10MG [Concomitant]
  9. LINZESS [Concomitant]
     Active Substance: LINACLOTIDE
  10. ESCITALOPRAM [Concomitant]
     Active Substance: ESCITALOPRAM OXALATE
  11. AMLODIPINE [Concomitant]
     Active Substance: AMLODIPINE BESYLATE
  12. METOCLOPRAMIDE 10MG [Concomitant]
     Active Substance: METOCLOPRAMIDE

REACTIONS (9)
  - Dyspnoea [None]
  - Throat irritation [None]
  - Headache [None]
  - Ear pruritus [None]
  - Lip swelling [None]
  - Hypersensitivity [None]
  - Chest pain [None]
  - Injection site swelling [None]
  - Peripheral swelling [None]
